FAERS Safety Report 6572548-5 (Version None)
Quarter: 2010Q1

REPORT INFORMATION
  Report Type: 
  Country: None (occurrence: None)
  Receive Date: 20100205
  Receipt Date: 20100125
  Transmission Date: 20100710
  Serious: Yes (Hospitalization)
  Sender: FDA-Public Use
  Company Number: JP-SANOFI-AVENTIS-A01200816546

PATIENT
  Age: 66 Year
  Sex: Male
  Weight: 52 kg

DRUGS (9)
  1. OXALIPLATIN [Suspect]
     Indication: DRUG USE FOR UNKNOWN INDICATION
     Route: 041
     Dates: start: 20071031, end: 20071031
  2. OXALIPLATIN [Suspect]
     Route: 041
     Dates: start: 20080204, end: 20080204
  3. FLUOROURACIL [Suspect]
     Indication: DRUG USE FOR UNKNOWN INDICATION
     Route: 042
     Dates: start: 20071031
  4. CALCIUM LEVOFOLINATE [Suspect]
     Indication: DRUG USE FOR UNKNOWN INDICATION
     Route: 041
     Dates: start: 20071031
  5. AVASTIN [Suspect]
     Indication: COLON CANCER METASTATIC
     Route: 041
     Dates: start: 20071031, end: 20071031
  6. AVASTIN [Suspect]
     Route: 041
     Dates: start: 20080526, end: 20080526
  7. RHYTHMY [Concomitant]
     Dates: start: 20070101, end: 20080430
  8. MAGNESIUM OXIDE [Concomitant]
     Dates: start: 20070101, end: 20080430
  9. SODIUM PICOSULFATE [Concomitant]
     Dates: start: 20070101, end: 20080430

REACTIONS (8)
  - ANGINA UNSTABLE [None]
  - DIARRHOEA [None]
  - EPISTAXIS [None]
  - FATIGUE [None]
  - NAUSEA [None]
  - NEUROPATHY PERIPHERAL [None]
  - RASH [None]
  - STOMATITIS [None]
